FAERS Safety Report 7675237-9 (Version None)
Quarter: 2011Q3

REPORT INFORMATION
  Report Type: 
  Country: None (occurrence: None)
  Receive Date: 20110810
  Receipt Date: 20110809
  Transmission Date: 20111222
  Serious: No
  Sender: FDA-Public Use
  Company Number: US-TEVA-295688USA

PATIENT
  Sex: Female
  Weight: 49.94 kg

DRUGS (1)
  1. PLAN B ONE-STEP [Suspect]
     Indication: POST COITAL CONTRACEPTION
     Dosage: 1.5 MILLIGRAM;
     Route: 048
     Dates: start: 20110717, end: 20110717

REACTIONS (7)
  - PREGNANCY AFTER POST COITAL CONTRACEPTION [None]
  - SOMNOLENCE [None]
  - ASTHENIA [None]
  - PELVIC PAIN [None]
  - VOMITING IN PREGNANCY [None]
  - FATIGUE [None]
  - DRUG INEFFECTIVE [None]
